FAERS Safety Report 8056623-4 (Version None)
Quarter: 2012Q1

REPORT INFORMATION
  Report Type: 
  Country: None (occurrence: None)
  Receive Date: 20120119
  Receipt Date: 20120110
  Transmission Date: 20120608
  Serious: Yes (Other)
  Sender: FDA-Public Use
  Company Number: CHPA2012US000876

PATIENT
  Age: 52 Year
  Sex: Female

DRUGS (2)
  1. ACETYLSALICYLIC ACID SRT [Concomitant]
  2. EXCEDRIN EXTRA STRENGTH CAPLETS [Suspect]
     Indication: HEADACHE
     Dosage: 2 DF, TID, PRN
     Route: 048
     Dates: start: 20120103, end: 20120110

REACTIONS (3)
  - DRUG ADMINISTRATION ERROR [None]
  - HEADACHE [None]
  - VISUAL ACUITY REDUCED [None]
